FAERS Safety Report 8499332-X (Version None)
Quarter: 2012Q3

REPORT INFORMATION
  Report Type: 
  Country: None (occurrence: None)
  Receive Date: 20120710
  Receipt Date: 20120709
  Transmission Date: 20120928
  Serious: Yes (Death)
  Sender: FDA-Public Use
  Company Number: PHFR2012GB003686

PATIENT
  Sex: Male

DRUGS (1)
  1. CLOZARIL [Suspect]
     Indication: SCHIZOPHRENIA
     Dosage: 400 MG DAILY
     Dates: start: 20080924

REACTIONS (3)
  - PERITONITIS [None]
  - APPENDICITIS PERFORATED [None]
  - APPENDICEAL ABSCESS [None]
